FAERS Safety Report 6531046-5 (Version None)
Quarter: 2010Q1

REPORT INFORMATION
  Report Type: 
  Country: None (occurrence: None)
  Receive Date: 20100108
  Receipt Date: 20091216
  Transmission Date: 20100710
  Serious: No
  Sender: FDA-Public Use
  Company Number: A0812411A

PATIENT
  Age: 68 Year
  Sex: Female

DRUGS (5)
  1. LOVAZA [Suspect]
     Indication: ARTHRITIS
     Dosage: 2CAPL PER DAY
     Route: 048
     Dates: start: 20090701, end: 20091017
  2. SYNTHROID [Concomitant]
  3. ACTOS [Concomitant]
  4. MAGNESIUM [Concomitant]
  5. VITAMIN D [Concomitant]

REACTIONS (3)
  - FLATULENCE [None]
  - PRODUCT ODOUR ABNORMAL [None]
  - PRODUCT QUALITY ISSUE [None]
